FAERS Safety Report 23996195 (Version 1)
Quarter: 2024Q2

REPORT INFORMATION
  Report Type: Spontaneous
  Country: US (occurrence: US)
  Receive Date: 20240620
  Receipt Date: 20240620
  Transmission Date: 20240715
  Serious: No
  Sender: FDA-Public Use
  Company Number: US-ABBVIE-5808852

PATIENT
  Sex: Male
  Weight: 98 kg

DRUGS (2)
  1. IMBRUVICA [Suspect]
     Active Substance: IBRUTINIB
     Indication: Product used for unknown indication
     Route: 048
  2. AZACITIDINE [Suspect]
     Active Substance: AZACITIDINE
     Indication: Myelodysplastic syndrome
     Dosage: DURATION TEXT: DAILY FOR DAYS 1-5 OR DAYS 1-7
     Route: 042
     Dates: start: 20230102

REACTIONS (1)
  - Drug hypersensitivity [Unknown]
